FAERS Safety Report 7792496-2 (Version None)
Quarter: 2011Q4

REPORT INFORMATION
  Report Type: 
  Country: None (occurrence: None)
  Receive Date: 20111003
  Receipt Date: 20110928
  Transmission Date: 20120403
  Serious: Yes (Hospitalization, Other)
  Sender: FDA-Public Use
  Company Number: US-PFIZER INC-2011044467

PATIENT
  Sex: Female

DRUGS (7)
  1. CYANOCOBALAMIN [Concomitant]
     Indication: ANAEMIA
     Dosage: UNK
  2. FIORINAL [Concomitant]
     Indication: PAIN
     Dosage: UNK
  3. VALIUM [Concomitant]
     Indication: ANXIETY
     Dosage: UNK
  4. LOMOTIL [Concomitant]
     Indication: DIARRHOEA
     Dosage: UNK
  5. MESALAZINE [Concomitant]
     Indication: ULCER
     Dosage: UNK
     Dates: end: 20100101
  6. CHANTIX [Suspect]
     Indication: SMOKING CESSATION THERAPY
     Dosage: 1 MG, UNK
     Dates: start: 20070118, end: 20070421
  7. PROMETHAZINE [Concomitant]
     Indication: HYPERSENSITIVITY
     Dosage: UNK

REACTIONS (7)
  - AGGRESSION [None]
  - IMPAIRED DRIVING ABILITY [None]
  - MENTAL DISORDER [None]
  - ANXIETY [None]
  - DEPRESSION [None]
  - ABNORMAL BEHAVIOUR [None]
  - EMOTIONAL DISTRESS [None]
